FAERS Safety Report 4355500-X (Version None)
Quarter: 2004Q2

REPORT INFORMATION
  Report Type: 
  Country: None (occurrence: None)
  Receive Date: 20040503
  Receipt Date: 20030909
  Transmission Date: 20050107
  Serious: Yes (Life-Threatening, Hospitalization)
  Sender: FDA-Public Use
  Company Number: PHEH2003US07029

PATIENT
  Age: 43 Year
  Sex: Female

DRUGS (3)
  1. LOTREL [Suspect]
     Indication: HYPERTENSION
     Dosage: 1 CAPSULE/QD
     Dates: start: 20030730, end: 20030804
  2. GLUCOPHAGE [Concomitant]
  3. SOLU-MEDROL [Concomitant]

REACTIONS (3)
  - ANGIONEUROTIC OEDEMA [None]
  - TONGUE OEDEMA [None]
  - URTICARIA [None]
